FAERS Safety Report 6243520-X (Version None)
Quarter: 2009Q2

REPORT INFORMATION
  Report Type: 
  Country: None (occurrence: None)
  Receive Date: 20090624
  Receipt Date: 20090611
  Transmission Date: 20091009
  Serious: Yes (Other)
  Sender: FDA-Public Use
  Company Number: PHHY2009IE23623

PATIENT
  Sex: Male

DRUGS (2)
  1. CLOZARIL [Suspect]
     Indication: SCHIZOPHRENIA
     Dosage: UNK
     Dates: start: 20080926
  2. CLOZARIL [Suspect]
     Dosage: 100 MG IN THE AFTERNOON AND 200 MG AT NIGHT

REACTIONS (3)
  - GRAND MAL CONVULSION [None]
  - PYREXIA [None]
  - URINARY TRACT INFECTION [None]
